FAERS Safety Report 7881257-1 (Version None)
Quarter: 2011Q4

REPORT INFORMATION
  Report Type: 
  Country: None (occurrence: None)
  Receive Date: 20111101
  Receipt Date: 20110608
  Transmission Date: 20120403
  Serious: Yes (Hospitalization)
  Sender: FDA-Public Use
  Company Number: US-AMGEN-USASP2011029574

PATIENT
  Age: 43 Year
  Sex: Male

DRUGS (1)
  1. ENBREL [Suspect]
     Indication: PSORIASIS
     Dosage: 50 MG, QWK
     Dates: start: 20110325

REACTIONS (6)
  - CHEST PAIN [None]
  - DRY SKIN [None]
  - DIZZINESS [None]
  - NAUSEA [None]
  - ASTHENIA [None]
  - SKIN EXFOLIATION [None]
